FAERS Safety Report 11872473 (Version 1)
Quarter: 2015Q4

REPORT INFORMATION
  Report Type: Spontaneous
  Country: GB (occurrence: GB)
  Receive Date: 20151228
  Receipt Date: 20151228
  Transmission Date: 20160305
  Serious: Yes (Hospitalization)
  Sender: FDA-Public Use
  Company Number: GB-BRACCO-001051

PATIENT
  Age: 53 Year
  Sex: Female

DRUGS (1)
  1. NIOPAM [Suspect]
     Active Substance: IOPAMIDOL
     Indication: COMPUTERISED TOMOGRAM
     Route: 042
     Dates: start: 20151215, end: 20151215

REACTIONS (4)
  - Presyncope [Unknown]
  - Head injury [Unknown]
  - Vomiting [Unknown]
  - Syncope [Unknown]

NARRATIVE: CASE EVENT DATE: 20151215
